FAERS Safety Report 4532150-3 (Version None)
Quarter: 2004Q4

REPORT INFORMATION
  Report Type: 
  Country: None (occurrence: None)
  Receive Date: 20041220
  Receipt Date: 20041210
  Transmission Date: 20050328
  Serious: Yes (Hospitalization)
  Sender: FDA-Public Use
  Company Number: US-JNJFOC-20041203147

PATIENT
  Age: 38 Year
  Sex: Male

DRUGS (7)
  1. RISPERDAL CONSTA [Suspect]
     Indication: BIPOLAR DISORDER
     Route: 030
     Dates: end: 20041209
  2. RISPERDAL CONSTA [Suspect]
     Indication: SCHIZOPHRENIA
     Route: 030
     Dates: end: 20041209
  3. RISPERDAL [Suspect]
     Indication: BIPOLAR DISORDER
     Route: 049
  4. RISPERDAL [Suspect]
     Indication: SCHIZOPHRENIA
     Route: 049
  5. DEPAKOTE [Concomitant]
     Route: 049
  6. COGENTIN [Concomitant]
     Route: 049
  7. ATIVAN [Concomitant]
     Route: 049

REACTIONS (2)
  - DYSPEPSIA [None]
  - HOSPITALISATION [None]
